FAERS Safety Report 6036511-5 (Version None)
Quarter: 2009Q1

REPORT INFORMATION
  Report Type: 
  Country: None (occurrence: None)
  Receive Date: 20090114
  Receipt Date: 20090106
  Transmission Date: 20090719
  Serious: Yes (Hospitalization)
  Sender: FDA-Public Use
  Company Number: US-ASTRAZENECA-2009UW00343

PATIENT
  Sex: Female
  Weight: 70.3 kg

DRUGS (1)
  1. SEROQUEL [Suspect]
     Route: 048
     Dates: start: 20040806

REACTIONS (1)
  - KIDNEY INFECTION [None]
